FAERS Safety Report 6127514-0 (Version None)
Quarter: 2009Q1

REPORT INFORMATION
  Report Type: 
  Country: None (occurrence: None)
  Receive Date: 20090319
  Receipt Date: 20090313
  Transmission Date: 20090719
  Serious: Yes (Hospitalization)
  Sender: FDA-Public Use
  Company Number: 188030ISR

PATIENT
  Sex: Female

DRUGS (2)
  1. WARFARIN SODIUM [Suspect]
     Indication: EMBOLISM
     Dosage: ORAL
     Route: 048
  2. DABIGATRAN [Suspect]

REACTIONS (2)
  - POSTMENOPAUSAL HAEMORRHAGE [None]
  - UTERINE POLYP [None]
